FAERS Safety Report 5471814-4 (Version None)
Quarter: 2007Q3

REPORT INFORMATION
  Report Type: 
  Country: None (occurrence: None)
  Receive Date: 20070928
  Receipt Date: 20070607
  Transmission Date: 20080115
  Serious: No
  Sender: FDA-Public Use
  Company Number: US-BRISTOL-MYERS SQUIBB COMPANY-13806658

PATIENT
  Sex: Female
  Weight: 81 kg

DRUGS (10)
  1. DEFINITY [Suspect]
     Indication: ECHOCARDIOGRAM
     Route: 042
  2. ASPIRIN [Concomitant]
  3. CALCIUM + VITAMIN D [Concomitant]
  4. DICLOFENAC SODIUM [Concomitant]
  5. K-DUR 10 [Concomitant]
  6. LASIX [Concomitant]
  7. LIPITOR [Concomitant]
  8. METOPROLOL SUCCINATE [Concomitant]
  9. MULTI-VITAMIN [Concomitant]
  10. SYNTHROID [Concomitant]

REACTIONS (3)
  - BACK PAIN [None]
  - INFUSION SITE PAIN [None]
  - PAIN IN EXTREMITY [None]
